FAERS Safety Report 11386144 (Version 1)
Quarter: 2015Q3

REPORT INFORMATION
  Report Type: Spontaneous
  Country: US (occurrence: US)
  Receive Date: 20150817
  Receipt Date: 20150817
  Transmission Date: 20151125
  Serious: No
  Sender: FDA-Public Use
  Company Number: US-ASTRAZENECA-2015SE75576

PATIENT
  Sex: Female

DRUGS (2)
  1. NEXIUM [Suspect]
     Active Substance: ESOMEPRAZOLE MAGNESIUM
     Route: 048
  2. CALCIUM SUPPLEMENT WITH VITAMIN D [Concomitant]
     Indication: BONE DENSITY ABNORMAL

REACTIONS (2)
  - Hiatus hernia [Unknown]
  - Gastrooesophageal reflux disease [Unknown]
